FAERS Safety Report 13894635 (Version 9)
Quarter: 2020Q2

REPORT INFORMATION
  Report Type: Report from Study
  Country: NO (occurrence: NO)
  Receive Date: 20170823
  Receipt Date: 20200602
  Transmission Date: 20200713
  Serious: Yes (Hospitalization)
  Sender: FDA-Public Use
  Company Number: NO-ROCHE-1978046

PATIENT
  Age: 40 Year
  Sex: Female
  Weight: 70 kg

DRUGS (13)
  1. PARACET [PARACETAMOL] [Concomitant]
     Indication: PYREXIA
  2. KLEXANE [Concomitant]
     Active Substance: ENOXAPARIN
     Dosage: PREVENT EMBOLI
     Route: 065
     Dates: start: 20170501
  3. SOLVIPECT [Concomitant]
     Indication: VIRAL UPPER RESPIRATORY TRACT INFECTION
     Route: 065
     Dates: start: 20171102, end: 20171114
  4. PARACET [PARACETAMOL] [Concomitant]
     Indication: HEADACHE
  5. DESLORATADIN [Concomitant]
     Active Substance: DESLORATADINE
     Indication: RASH
     Route: 065
     Dates: start: 20170623, end: 20170710
  6. RINEXIN [Concomitant]
     Active Substance: PHENYLPROPANOLAMINE
     Indication: VIRAL UPPER RESPIRATORY TRACT INFECTION
     Route: 065
     Dates: start: 20171030, end: 20171114
  7. PARACET [PARACETAMOL] [Concomitant]
     Indication: PAIN
     Route: 065
     Dates: start: 20170330
  8. NAB-PACLITAXEL [Suspect]
     Active Substance: PACLITAXEL
     Indication: TRIPLE NEGATIVE BREAST CANCER
     Dosage: MOST RECENT DOSE OF PACLITAXEL ALBUMIN PRIOR TO THE ONSET OF SERUM CHOLESTEROL DECREASED: 26/JUL/201
     Route: 042
     Dates: start: 20170329
  9. ONDANSETRON [Concomitant]
     Active Substance: ONDANSETRON
     Route: 065
     Dates: start: 20170329
  10. DUPHALAC [Concomitant]
     Active Substance: LACTULOSE
     Indication: CONSTIPATION
     Route: 065
     Dates: start: 20170412, end: 20171027
  11. ATEZOLIZUMAB. [Suspect]
     Active Substance: ATEZOLIZUMAB
     Indication: TRIPLE NEGATIVE BREAST CANCER
     Dosage: MOST RECENT DOSE: 26/JUL/2017, 840 MG
     Route: 042
     Dates: start: 20170329
  12. AFIPRAN [Concomitant]
     Active Substance: METOCLOPRAMIDE HYDROCHLORIDE
     Indication: NAUSEA
     Route: 065
     Dates: start: 20170329, end: 20180829
  13. AKYNZEO [Concomitant]
     Active Substance: NETUPITANT\PALONOSETRON HYDROCHLORIDE
     Route: 065
     Dates: start: 20170518, end: 20180216

REACTIONS (1)
  - Hypophysitis [Recovered/Resolved]

NARRATIVE: CASE EVENT DATE: 20170807
